FAERS Safety Report 16342622 (Version 1)
Quarter: 2019Q2

REPORT INFORMATION
  Report Type: Spontaneous
  Country: FR (occurrence: FR)
  Receive Date: 20190522
  Receipt Date: 20190522
  Transmission Date: 20190711
  Serious: Yes (Hospitalization)
  Sender: FDA-Public Use
  Company Number: FR-PFIZER INC-2019209466

PATIENT
  Sex: Male

DRUGS (9)
  1. CARBOPLATIN. [Suspect]
     Active Substance: CARBOPLATIN
     Dosage: 150 MG, UNK
     Route: 042
     Dates: start: 20180306, end: 20181010
  2. TAXOL [Suspect]
     Active Substance: PACLITAXEL
     Dosage: 96 MG, UNK
     Route: 042
     Dates: start: 20180306, end: 20181010
  3. MEDROL [Concomitant]
     Active Substance: METHYLPREDNISOLONE
     Dosage: UNK
  4. OXYNORMORO [Concomitant]
     Active Substance: OXYCODONE HYDROCHLORIDE
     Dosage: UNK
  5. POLARAMINE [Concomitant]
     Active Substance: DEXCHLORPHENIRAMINE MALEATE
     Dosage: UNK
  6. ZOPHREN [ONDANSETRON] [Concomitant]
     Active Substance: ONDANSETRON
     Dosage: UNK
  7. AVASTIN [Suspect]
     Active Substance: BEVACIZUMAB
     Dosage: UNK
     Route: 042
     Dates: start: 20180306, end: 20181010
  8. DUROGESIC [Concomitant]
     Active Substance: FENTANYL
     Dosage: 12 MG, UNK
  9. DEROXAT [Concomitant]
     Active Substance: PAROXETINE HYDROCHLORIDE
     Dosage: UNK

REACTIONS (7)
  - Drug hypersensitivity [Recovered/Resolved]
  - Malaise [Recovered/Resolved]
  - Vomiting [Unknown]
  - Hyperthermia [Recovered/Resolved]
  - Balance disorder [Recovered/Resolved]
  - Headache [Recovered/Resolved]
  - Hepatic pain [Not Recovered/Not Resolved]

NARRATIVE: CASE EVENT DATE: 20180913
